FAERS Safety Report 8010742-7 (Version None)
Quarter: 2011Q4

REPORT INFORMATION
  Report Type: 
  Country: None (occurrence: None)
  Receive Date: 20111228
  Receipt Date: 20111219
  Transmission Date: 20120403
  Serious: Yes (Hospitalization)
  Sender: FDA-Public Use
  Company Number: TR-MEDIMMUNE-MEDI-0014150

PATIENT
  Sex: Female
  Weight: 6.5 kg

DRUGS (2)
  1. SYNAGIS [Suspect]
     Route: 030
     Dates: start: 20111111, end: 20111111
  2. SYNAGIS [Suspect]
     Route: 030
     Dates: start: 20111005, end: 20111005

REACTIONS (3)
  - COUGH [None]
  - INCREASED BRONCHIAL SECRETION [None]
  - VARICELLA [None]
